FAERS Safety Report 7247508-1 (Version None)
Quarter: 2011Q1

REPORT INFORMATION
  Report Type: 
  Country: None (occurrence: None)
  Receive Date: 20110127
  Receipt Date: 20110118
  Transmission Date: 20110831
  Serious: Yes (Other)
  Sender: FDA-Public Use
  Company Number: US-ROCHE-751665

PATIENT
  Sex: Female
  Weight: 104.3 kg

DRUGS (1)
  1. ACCUTANE [Suspect]
     Indication: ACNE
     Route: 065
     Dates: start: 19951201, end: 19960401

REACTIONS (11)
  - ANAL ABSCESS [None]
  - ANAL FISTULA [None]
  - COLITIS ULCERATIVE [None]
  - INFLAMMATORY BOWEL DISEASE [None]
  - DEPRESSION [None]
  - DIVERTICULUM [None]
  - PRURITUS [None]
  - URTICARIA [None]
  - DIVERTICULITIS [None]
  - INTESTINAL OBSTRUCTION [None]
  - MYALGIA [None]
